FAERS Safety Report 22117975 (Version 1)
Quarter: 2023Q1

REPORT INFORMATION
  Report Type: Spontaneous
  Country: US (occurrence: None)
  Receive Date: 20230321
  Receipt Date: 20230321
  Transmission Date: 20230418
  Serious: Yes (Other)
  Sender: FDA-Public Use
  Company Number: US-ROCHE-3229672

PATIENT
  Age: 68 Year
  Sex: Male

DRUGS (1)
  1. VABYSMO [Suspect]
     Active Substance: FARICIMAB-SVOA
     Indication: Neovascular age-related macular degeneration
     Dosage: LEFT EYE, LASE DOSE OF DRUG PRIOR TO AE WAS ON 15/NOV/2022, TOTAL NUMBER OF FARICIMAB RECEIVED ARE 5
     Route: 065
     Dates: start: 20220712, end: 20221115

REACTIONS (1)
  - Endophthalmitis [Recovered/Resolved]

NARRATIVE: CASE EVENT DATE: 20221121
